FAERS Safety Report 13941008 (Version 4)
Quarter: 2018Q3

REPORT INFORMATION
  Report Type: Spontaneous
  Country: US (occurrence: US)
  Receive Date: 20170906
  Receipt Date: 20180706
  Transmission Date: 20181010
  Serious: Yes (Hospitalization, Other)
  Sender: FDA-Public Use
  Company Number: US-DSJP-DSU-2017-134875

PATIENT

DRUGS (1)
  1. OLMESARTAN MEDOXOMIL. [Suspect]
     Active Substance: OLMESARTAN MEDOXOMIL
     Indication: PRODUCT USED FOR UNKNOWN INDICATION
     Dosage: UNK
     Dates: start: 20140101, end: 20161231

REACTIONS (11)
  - Gastrointestinal necrosis [Recovered/Resolved]
  - Hepatic steatosis [Unknown]
  - Incarcerated incisional hernia [Recovered/Resolved]
  - Cholecystitis acute [Recovered/Resolved]
  - Haemorrhoids [Not Recovered/Not Resolved]
  - Gastric ulcer [Not Recovered/Not Resolved]
  - Peptic ulcer [Not Recovered/Not Resolved]
  - Small intestinal obstruction [Recovered/Resolved]
  - Abdominal hernia [Recovered/Resolved]
  - Intestinal cyst [Recovered/Resolved]
  - Weight decreased [Recovered/Resolved]

NARRATIVE: CASE EVENT DATE: 20140101
